FAERS Safety Report 9880520 (Version 2)
Quarter: 2014Q1

REPORT INFORMATION
  Report Type: Spontaneous
  Country: AR (occurrence: AR)
  Receive Date: 20140207
  Receipt Date: 20140207
  Transmission Date: 20141002
  Serious: Yes (Other)
  Sender: FDA-Public Use
  Company Number: AR-AMGEN-ARGSP2012080664

PATIENT
  Age: 69 Year
  Sex: Female

DRUGS (3)
  1. ENBREL [Suspect]
     Indication: RHEUMATOID ARTHRITIS
     Dosage: 50 MG, WEEKLY
     Route: 058
     Dates: start: 20031114
  2. FLEXIDOL                           /01007201/ [Concomitant]
     Indication: ARTHRITIS
     Dosage: 15 MG, ONCE DAILY
  3. ACETAMINOPHEN [Concomitant]
     Dosage: 1 G, ONCE DAILY

REACTIONS (3)
  - Arthralgia [Recovering/Resolving]
  - Osteoarthritis [Recovering/Resolving]
  - Limb deformity [Recovering/Resolving]
